FAERS Safety Report 9270079 (Version 2)
Quarter: 2013Q2

REPORT INFORMATION
  Report Type: Spontaneous
  Country: US (occurrence: US)
  Receive Date: 20130503
  Receipt Date: 20130618
  Transmission Date: 20140414
  Serious: Yes (Hospitalization)
  Sender: FDA-Public Use
  Company Number: US-FRI-1000044879

PATIENT
  Age: 81 Year
  Sex: Female

DRUGS (7)
  1. ARMOUR THYROID [Suspect]
     Indication: HYPOTHYROIDISM
     Dosage: 120MG
     Route: 048
  2. ARMOUR THYROID [Suspect]
     Dosage: 90MG
     Route: 048
     Dates: end: 201212
  3. ARMOUR THYROID [Suspect]
     Dosage: 60MG
     Route: 048
     Dates: start: 201212, end: 201303
  4. ARMOUR THYROID [Suspect]
     Indication: HYPOTHYROIDISM
     Dosage: 90MG
     Route: 048
     Dates: start: 201303, end: 201305
  5. ARMOUR THYROID [Suspect]
     Dosage: 60MG
     Route: 048
     Dates: start: 201305
  6. ASPIRIN [Concomitant]
     Indication: ANTICOAGULANT THERAPY
     Dosage: 81MG
  7. LORAZEPAM [Concomitant]
     Indication: IRRITABLE BOWEL SYNDROME
     Dosage: 0.5MG AS NEEDED

REACTIONS (3)
  - Myocardial infarction [Recovered/Resolved]
  - Cerebrovascular accident [Recovered/Resolved]
  - Hyperhidrosis [Recovered/Resolved]
